FAERS Safety Report 9699602 (Version 2)
Quarter: 2013Q4

REPORT INFORMATION
  Report Type: Spontaneous
  Country: US (occurrence: US)
  Receive Date: 20131120
  Receipt Date: 20131125
  Transmission Date: 20140711
  Serious: No
  Sender: FDA-Public Use
  Company Number: US-TEVA-372700USA

PATIENT
  Age: 19 Year
  Sex: Female
  Weight: 60.84 kg

DRUGS (9)
  1. PARAGARD 380A [Suspect]
     Indication: CONTRACEPTION
     Route: 015
     Dates: start: 20120530, end: 20121123
  2. WELLBUTRIN [Concomitant]
  3. LYRICA [Concomitant]
  4. CONCERTA [Concomitant]
  5. ACIPHEX [Concomitant]
  6. ZOPRAM [Concomitant]
  7. ZYRTEC [Concomitant]
  8. XANAX [Concomitant]
  9. DULCOLAX [Concomitant]

REACTIONS (3)
  - Uterine spasm [Recovered/Resolved]
  - Device expulsion [Recovered/Resolved]
  - Uterine cervical pain [Recovered/Resolved]
